FAERS Safety Report 16368461 (Version 2)
Quarter: 2019Q4

REPORT INFORMATION
  Report Type: Spontaneous
  Country: IT (occurrence: IT)
  Receive Date: 20190529
  Receipt Date: 20191227
  Transmission Date: 20200122
  Serious: Yes (Hospitalization)
  Sender: FDA-Public Use
  Company Number: IT-SAMSUNG BIOEPIS-SB-2019-12507

PATIENT
  Age: 47 Year
  Sex: Female

DRUGS (2)
  1. FLIXABI [Suspect]
     Active Substance: INFLIXIMAB
     Indication: CROHN^S DISEASE
     Route: 042
     Dates: start: 20180207, end: 20181101
  2. FLIXABI [Suspect]
     Active Substance: INFLIXIMAB
     Indication: CROHN^S DISEASE
     Route: 042
     Dates: start: 20181101, end: 20181201

REACTIONS (2)
  - Drug ineffective [Recovering/Resolving]
  - Ulcer [Recovering/Resolving]

NARRATIVE: CASE EVENT DATE: 20181201
